FAERS Safety Report 8089586-6 (Version None)
Quarter: 2012Q1

REPORT INFORMATION
  Report Type: 
  Country: None (occurrence: None)
  Receive Date: 20120128
  Receipt Date: 20110617
  Transmission Date: 20120608
  Serious: No
  Sender: FDA-Public Use
  Company Number: US-ABBOTT-11P-163-0733604-00

PATIENT
  Age: 57 Year
  Sex: Male

DRUGS (5)
  1. HTCZ [Concomitant]
     Indication: DIURETIC THERAPY
  2. FOSNOPRIL(LISINOPRIL) [Concomitant]
     Indication: HYPERTENSION
  3. OMEPRAZOLE [Concomitant]
     Indication: GASTROOESOPHAGEAL REFLUX DISEASE
  4. HUMIRA [Suspect]
     Indication: PSORIATIC ARTHROPATHY
     Dates: start: 20110401
  5. VYTORIN [Concomitant]
     Indication: BLOOD CHOLESTEROL INCREASED

REACTIONS (6)
  - TENDON RUPTURE [None]
  - MUSCLE STRAIN [None]
  - LIGAMENT SPRAIN [None]
  - HEPATIC ENZYME INCREASED [None]
  - CONTUSION [None]
  - PAIN IN EXTREMITY [None]
